FAERS Safety Report 20902321 (Version 2)
Quarter: 2023Q4

REPORT INFORMATION
  Report Type: Spontaneous
  Country: GB (occurrence: GB)
  Receive Date: 20220601
  Receipt Date: 20231030
  Transmission Date: 20240110
  Serious: No
  Sender: FDA-Public Use
  Company Number: GB-002147023-NVSC2022GB119758

PATIENT
  Sex: Female

DRUGS (6)
  1. ONDANSETRON [Suspect]
     Active Substance: ONDANSETRON
     Indication: Product used for unknown indication
     Dosage: TWICE A DAY (DOSAGE TEXT:UNK UNK, BID (PRN)
     Route: 065
  2. ACYCLOVIR [Suspect]
     Active Substance: ACYCLOVIR
     Indication: Product used for unknown indication
     Dosage: THRICE A DAY (DOSAGE TEXT:UNK UNK, TID)
     Route: 065
  3. RYDAPT [Suspect]
     Active Substance: MIDOSTAURIN
     Indication: Product used for unknown indication
     Dosage: TWICE A DAY (DOSAGE TEXT:UNK UNK, BID)
     Route: 048
  4. RYDAPT [Suspect]
     Active Substance: MIDOSTAURIN
     Dosage: TWICE A DAY (DOSAGE TEXT:UNK UNK, BID, 25 MG CAPS 56
     Route: 048
  5. ACYCLOVIR [Suspect]
     Active Substance: ACYCLOVIR
     Dosage: 200 MG (DOSAGE TEXT:200 MG, DISP TAB25 RAN)
     Route: 065
  6. ONDANSETRON [Suspect]
     Active Substance: ONDANSETRON
     Dosage: TWICE A DAY (DOSAGE TEXT:UNK, BID)
     Route: 048

REACTIONS (4)
  - Asthenia [Unknown]
  - Incorrect dose administered [Unknown]
  - Malaise [Unknown]
  - Diarrhoea [Unknown]
